FAERS Safety Report 5509066-9 (Version None)
Quarter: 2007Q4

REPORT INFORMATION
  Report Type: 
  Country: None (occurrence: None)
  Receive Date: 20071107
  Receipt Date: 20071031
  Transmission Date: 20080405
  Serious: Yes (Other)
  Sender: FDA-Public Use
  Company Number: US-SANOFI-SYNTHELABO-A03200706239

PATIENT
  Sex: Female

DRUGS (6)
  1. CITRACAL [Concomitant]
     Indication: BONE DISORDER
     Dosage: UNK
     Route: 048
  2. LISINOPRIL [Concomitant]
     Indication: HYPERTENSION
     Dosage: UNK
     Route: 048
  3. ACTONEL [Concomitant]
     Indication: BONE DISORDER
     Dosage: UNK
     Route: 048
  4. FOSAMAX [Concomitant]
     Indication: BONE DISORDER
     Dosage: UNK
     Route: 048
  5. LIPITOR [Concomitant]
     Indication: BLOOD CHOLESTEROL INCREASED
     Dosage: UNK
     Route: 048
  6. AMBIEN [Suspect]
     Indication: INSOMNIA
     Route: 048
     Dates: start: 20071023, end: 20071023

REACTIONS (9)
  - CONTUSION [None]
  - DRUG INEFFECTIVE [None]
  - DYSKINESIA [None]
  - FALL [None]
  - HAEMORRHAGE [None]
  - HEADACHE [None]
  - JOINT INJURY [None]
  - PAIN [None]
  - PERIORBITAL HAEMATOMA [None]
